FAERS Safety Report 22619559 (Version 1)
Quarter: 2023Q2

REPORT INFORMATION
  Report Type: Spontaneous
  Country: PL (occurrence: PL)
  Receive Date: 20230620
  Receipt Date: 20230620
  Transmission Date: 20230721
  Serious: Yes (Other)
  Sender: FDA-Public Use
  Company Number: PL-AUROBINDO-AUR-APL-2023-042329

PATIENT
  Age: 40 Year
  Sex: Female

DRUGS (4)
  1. OLANZAPINE [Suspect]
     Active Substance: OLANZAPINE
     Indication: Schizophrenia
     Dosage: 10 MILLIGRAM
     Route: 065
  2. HALOPERIDOL [Concomitant]
     Active Substance: HALOPERIDOL
     Indication: Schizophrenia
     Dosage: UP TO 15 MG
     Route: 065
  3. HALOPERIDOL [Concomitant]
     Active Substance: HALOPERIDOL
     Dosage: 100 MILLIGRAM, EVERY 2 WEEKS
     Route: 030
  4. ARIPIPRAZOLE [Concomitant]
     Active Substance: ARIPIPRAZOLE
     Indication: Schizophrenia
     Dosage: 30 MILLIGRAM, ONCE A DAY
     Route: 065

REACTIONS (3)
  - Drug abuse [Unknown]
  - Medication error [Unknown]
  - Drug ineffective [Unknown]
